FAERS Safety Report 9822381 (Version 2)
Quarter: 2014Q1

REPORT INFORMATION
  Report Type: Spontaneous
  Country: IT (occurrence: IT)
  Receive Date: 20140116
  Receipt Date: 20140116
  Transmission Date: 20141002
  Serious: Yes (Hospitalization)
  Sender: FDA-Public Use
  Company Number: IT-ORION CORPORATION ORION PHARMA-ENTC2013-0434

PATIENT
  Age: 83 Year
  Sex: Female

DRUGS (4)
  1. STALEVO [Suspect]
     Indication: PARKINSON^S DISEASE
     Dosage: STRENGTH: 200/50/200 MG
     Route: 065
     Dates: start: 20120912, end: 20130911
  2. AZILECT [Concomitant]
     Dosage: STRENGTH: 1 MG
     Route: 065
  3. NIMOTOP [Concomitant]
     Dosage: STRENGTH: 30 MG
     Route: 065
  4. CARDIRENE [Concomitant]
     Dosage: STRENGTH: 75 MG
     Route: 065

REACTIONS (1)
  - Hepatitis cholestatic [Not Recovered/Not Resolved]
